FAERS Safety Report 19020282 (Version 1)
Quarter: 2021Q1

REPORT INFORMATION
  Report Type: Spontaneous
  Country: IE (occurrence: IE)
  Receive Date: 20210317
  Receipt Date: 20210317
  Transmission Date: 20210420
  Serious: Yes (Other)
  Sender: FDA-Public Use
  Company Number: IE-MYLANLABS-2021M1016209

PATIENT
  Age: 52 Year
  Sex: Female

DRUGS (7)
  1. SULPHASALAZINE [Suspect]
     Active Substance: SULFASALAZINE
     Indication: PSORIATIC ARTHROPATHY
     Dosage: 1000 MILLIGRAM, BID
     Route: 048
  2. SECUKINUMAB. [Concomitant]
     Active Substance: SECUKINUMAB
     Dosage: 300 MILLIGRAM, MONTHLY
     Route: 058
  3. FOLIC ACID. [Concomitant]
     Active Substance: FOLIC ACID
     Indication: SUPPLEMENTATION THERAPY
     Dosage: 5 MILLIGRAM, QW
     Route: 048
  4. METHOTREXATE. [Suspect]
     Active Substance: METHOTREXATE
     Dosage: 25 MILLIGRAM, QW
     Route: 058
  5. METHOTREXATE. [Suspect]
     Active Substance: METHOTREXATE
     Indication: PSORIATIC ARTHROPATHY
     Dosage: 20 MILLIGRAM, QW
     Route: 058
  6. SECUKINUMAB. [Concomitant]
     Active Substance: SECUKINUMAB
     Indication: PSORIATIC ARTHROPATHY
     Dosage: 300 MILLIGRAM, QW WEEKLY FOR 5 WEEKS, FOLLOWED BY ONCE MONTHLY
     Route: 058
  7. ADALIMUMAB [Suspect]
     Active Substance: ADALIMUMAB
     Indication: PSORIATIC ARTHROPATHY
     Dosage: 40 MILLIGRAM, Q2W, FORTNIGHTLY
     Route: 058

REACTIONS (1)
  - Treatment failure [Unknown]
